FAERS Safety Report 6054902-3 (Version None)
Quarter: 2009Q1

REPORT INFORMATION
  Report Type: 
  Country: None (occurrence: None)
  Receive Date: 20090128
  Receipt Date: 20090116
  Transmission Date: 20090719
  Serious: Yes (Other)
  Sender: FDA-Public Use
  Company Number: PHHY2008CH33489

PATIENT
  Sex: Male

DRUGS (1)
  1. ZOMETA [Suspect]
     Dosage: 3 MG, QMO
     Route: 042
     Dates: start: 20071213, end: 20080912

REACTIONS (4)
  - MOUTH ULCERATION [None]
  - NEURALGIA [None]
  - OSTEOLYSIS [None]
  - OSTEONECROSIS [None]
